FAERS Safety Report 12185688 (Version 1)
Quarter: 2016Q1

REPORT INFORMATION
  Report Type: Spontaneous
  Country: US (occurrence: US)
  Receive Date: 20160316
  Receipt Date: 20160316
  Transmission Date: 20160526
  Serious: No
  Sender: FDA-Public Use
  Company Number: US-GALDERMA-US15000468

PATIENT
  Age: 12 Year
  Sex: Female

DRUGS (1)
  1. VECTICAL [Suspect]
     Active Substance: CALCITRIOL
     Indication: PSORIASIS
     Route: 061

REACTIONS (2)
  - Incorrect drug administration duration [Recovered/Resolved]
  - Drug administered to patient of inappropriate age [Recovered/Resolved]
